FAERS Safety Report 23792785 (Version 1)
Quarter: 2024Q2

REPORT INFORMATION
  Report Type: Spontaneous
  Country: US (occurrence: US)
  Receive Date: 20240429
  Receipt Date: 20240429
  Transmission Date: 20240716
  Serious: Yes (Other)
  Sender: FDA-Public Use
  Company Number: US-ALKEM LABORATORIES LIMITED-US-ALKEM-2024-08621

PATIENT
  Age: 38 Year
  Sex: Female

DRUGS (9)
  1. LIDOCAINE [Suspect]
     Active Substance: LIDOCAINE
     Indication: Anaesthesia
     Dosage: 15 MILLILITER,(EVERY 2 HOURS) (INTRALIPID INFUSION)
     Route: 065
  2. LIDOCAINE [Suspect]
     Active Substance: LIDOCAINE
     Dosage: UNK, (EVERY 30 MIN) (INTRALIPID INFUSION)
     Route: 065
  3. LIDOCAINE [Suspect]
     Active Substance: LIDOCAINE
     Dosage: 5.2 MICROGRAM/ML
     Route: 065
  4. EPINEPHRINE [Concomitant]
     Active Substance: EPINEPHRINE
     Indication: Anaesthesia
     Dosage: UNK, (0.08  ?G/KG/MIN) (MICROGRAM PER KILOGRAM PER MINUTE)
     Route: 065
  5. EPINEPHRINE [Concomitant]
     Active Substance: EPINEPHRINE
     Dosage: UNK (DOSE DECREASED) (REDUCED TO 0.01 ?G/KG/MIN) (  (MICROGRAM PER KILOGRAM PER MINUTE)
  6. EPINEPHRINE [Concomitant]
     Active Substance: EPINEPHRINE
     Dosage: UNK, (TITRATED OFF)
     Route: 065
  7. NITRIC OXIDE [Concomitant]
     Active Substance: NITRIC OXIDE
     Indication: Anaesthesia
     Dosage: UNK, (20 PPM)
     Route: 065
  8. NITRIC OXIDE [Concomitant]
     Active Substance: NITRIC OXIDE
     Dosage: UNK (RESTARTED DOSE)
     Route: 065
  9. NITRIC OXIDE [Concomitant]
     Active Substance: NITRIC OXIDE
     Dosage: UNK (DOSE TAPERED) (TAPERED OFF TWICE)
     Route: 065

REACTIONS (2)
  - Local anaesthetic systemic toxicity [Unknown]
  - Drug level increased [Unknown]
